FAERS Safety Report 6266967-4 (Version None)
Quarter: 2009Q3

REPORT INFORMATION
  Report Type: 
  Country: None (occurrence: None)
  Receive Date: 20090714
  Receipt Date: 20090708
  Transmission Date: 20100115
  Serious: Yes (Life-Threatening, Hospitalization)
  Sender: FDA-Public Use
  Company Number: AU-ROCHE-642614

PATIENT
  Sex: Male

DRUGS (10)
  1. TAMIFLU [Suspect]
     Indication: DRUG USE FOR UNKNOWN INDICATION
     Route: 048
     Dates: start: 20090604, end: 20090607
  2. DILATREND [Suspect]
     Indication: DRUG USE FOR UNKNOWN INDICATION
     Route: 065
  3. CEFTRIAXONE SODIUM [Suspect]
     Indication: DRUG USE FOR UNKNOWN INDICATION
     Route: 065
  4. CECLOR [Suspect]
     Indication: DRUG USE FOR UNKNOWN INDICATION
     Dosage: DRUG NAME: CECLOR CD
     Route: 065
  5. DOXYLIN [Suspect]
     Indication: DRUG USE FOR UNKNOWN INDICATION
     Route: 065
  6. SOMAC [Suspect]
     Indication: DRUG USE FOR UNKNOWN INDICATION
     Route: 065
  7. TRITACE [Suspect]
     Indication: DRUG USE FOR UNKNOWN INDICATION
     Route: 065
  8. AZITHROMYCIN [Concomitant]
  9. LASIX [Concomitant]
  10. RESONIUM A [Concomitant]

REACTIONS (10)
  - ABDOMINAL PAIN [None]
  - ABNORMAL BEHAVIOUR [None]
  - DELIRIUM [None]
  - DIARRHOEA [None]
  - HALLUCINATION [None]
  - HEPATOCELLULAR INJURY [None]
  - NEUTROPHILIA [None]
  - RENAL IMPAIRMENT [None]
  - VOMITING [None]
  - WHITE BLOOD CELL COUNT INCREASED [None]
